FAERS Safety Report 8164003-6 (Version None)
Quarter: 2012Q1

REPORT INFORMATION
  Report Type: 
  Country: None (occurrence: None)
  Receive Date: 20120221
  Receipt Date: 20120207
  Transmission Date: 20120608
  Serious: Yes (Hospitalization)
  Sender: FDA-Public Use
  Company Number: CL-387-2012

PATIENT
  Age: 57 Year
  Sex: Female

DRUGS (8)
  1. MAGNESIUM [Concomitant]
  2. METRONIDAZOLE [Suspect]
     Indication: TOOTH DISORDER
     Dosage: 200MG TID ORAL
     Route: 048
     Dates: start: 20090202, end: 20090205
  3. ENOPACE (BIOTIN,CHROMIUM, COPPER,IODINE, IRON, MAGNESIUM,MANGANESE,NIA [Concomitant]
  4. BENDROFLUMETHIAZIDE UNK [Suspect]
     Indication: HYPERTENSION
     Dosage: 2.5 MG QD ORAL
     Route: 048
     Dates: start: 20050101, end: 20090205
  5. ACETAMINOPHEN [Concomitant]
  6. CITALOPRAM HYDROBROMIDE [Suspect]
     Indication: DEPRESSION
     Dosage: 20MG OD ORAL
     Route: 048
     Dates: start: 20090202, end: 20090205
  7. GARLIC [Concomitant]
  8. ALTACE [Suspect]
     Indication: HYPERTENSION
     Dosage: 2.5 MG QD ORAL
     Route: 048
     Dates: start: 20060101, end: 20090205

REACTIONS (12)
  - DRUG INTERACTION [None]
  - FEELING HOT [None]
  - TOOTH DISORDER [None]
  - HYPONATRAEMIA [None]
  - NEUROLOGICAL SYMPTOM [None]
  - MEMORY IMPAIRMENT [None]
  - THIRST [None]
  - DEPRESSION [None]
  - OSMOTIC DEMYELINATION SYNDROME [None]
  - VOMITING [None]
  - CONVULSION [None]
  - GAIT DISTURBANCE [None]
